FAERS Safety Report 14373126 (Version 1)
Quarter: 2018Q1

REPORT INFORMATION
  Report Type: Spontaneous
  Country: FR (occurrence: FR)
  Receive Date: 20180110
  Receipt Date: 20180110
  Transmission Date: 20180509
  Serious: Yes (Death, Other)
  Sender: FDA-Public Use
  Company Number: FR-FRESENIUS KABI-FK201800340

PATIENT
  Age: 31 Year
  Sex: Female

DRUGS (4)
  1. EPHEDRINE. [Concomitant]
     Active Substance: EPHEDRINE
     Indication: PROPHYLAXIS
     Route: 065
  2. MORPHINE (MANUFACTURER UNKNOWN) [Suspect]
     Active Substance: MORPHINE
     Indication: SPINAL ANAESTHESIA
     Route: 037
  3. BUPIVACAINE (MANUFACTURER UNKNOWN) [Suspect]
     Active Substance: BUPIVACAINE
     Indication: SPINAL ANAESTHESIA
     Route: 037
  4. SUFENTANIL [Suspect]
     Active Substance: SUFENTANIL
     Indication: SPINAL ANAESTHESIA
     Route: 037

REACTIONS (7)
  - Acute pulmonary oedema [Not Recovered/Not Resolved]
  - Maternal exposure during delivery [Fatal]
  - Bradycardia [Unknown]
  - Pulseless electrical activity [Unknown]
  - Cardiac arrest [Fatal]
  - Hypertension [Unknown]
  - Ventricular tachycardia [Unknown]
